FAERS Safety Report 11400972 (Version 1)
Quarter: 2015Q3

REPORT INFORMATION
  Report Type: Spontaneous
  Country: US (occurrence: US)
  Receive Date: 20150820
  Receipt Date: 20150820
  Transmission Date: 20151125
  Serious: No
  Sender: FDA-Public Use
  Company Number: US-NEPHRON PHARMACEUTICALS CORPORATION-1041258

PATIENT
  Age: 56 Year
  Sex: Female
  Weight: 109.09 kg

DRUGS (2)
  1. ALBUTEROL SULFATE INHALATION SOLUTION, 0.042% [Suspect]
     Active Substance: ALBUTEROL SULFATE
     Indication: ASTHMA
     Route: 048
  2. IPRATROPIUM BROMIDE. [Suspect]
     Active Substance: IPRATROPIUM BROMIDE
     Route: 048

REACTIONS (1)
  - Tooth injury [Unknown]

NARRATIVE: CASE EVENT DATE: 20150401
